FAERS Safety Report 14446860 (Version 1)
Quarter: 2018Q1

REPORT INFORMATION
  Report Type: Spontaneous
  Country: US (occurrence: US)
  Receive Date: 20180126
  Receipt Date: 20180126
  Transmission Date: 20180509
  Serious: Yes (Death)
  Sender: FDA-Public Use
  Company Number: PHEH2018US003286

PATIENT
  Sex: Female

DRUGS (1)
  1. VOTRIENT [Suspect]
     Active Substance: PAZOPANIB HYDROCHLORIDE
     Indication: ENDOMETRIAL NEOPLASM
     Dosage: 400 MG, QD
     Route: 048
     Dates: start: 20170304

REACTIONS (2)
  - Death [Fatal]
  - Product use in unapproved indication [Unknown]
